FAERS Safety Report 7118245-9 (Version None)
Quarter: 2010Q4

REPORT INFORMATION
  Report Type: 
  Country: None (occurrence: None)
  Receive Date: 20101123
  Receipt Date: 20101021
  Transmission Date: 20110411
  Serious: Yes (Hospitalization)
  Sender: FDA-Public Use
  Company Number: IT-BAYER-201043301GPV

PATIENT
  Age: 66 Year
  Sex: Male

DRUGS (7)
  1. NEXAVAR [Suspect]
     Indication: HEPATIC NEOPLASM MALIGNANT
     Route: 048
     Dates: start: 20101007, end: 20101009
  2. PANTORC [Concomitant]
     Route: 048
  3. DELTACORTENE [Concomitant]
     Route: 048
  4. BLOPRESID [Concomitant]
     Route: 048
  5. HUMALOG [Concomitant]
     Route: 058
  6. NORVASC [Concomitant]
     Route: 048
  7. ANALGESIC [Concomitant]
     Indication: PANCREATITIS ACUTE

REACTIONS (1)
  - PANCREATITIS ACUTE [None]
